FAERS Safety Report 9624804 (Version 1)
Quarter: 2013Q4

REPORT INFORMATION
  Report Type: Spontaneous
  Country: TR (occurrence: TR)
  Receive Date: 20131015
  Receipt Date: 20131015
  Transmission Date: 20140711
  Serious: Yes (Hospitalization, Other)
  Sender: FDA-Public Use
  Company Number: TR-MYLANLABS-2013S1022681

PATIENT
  Age: 73 Year
  Sex: Female

DRUGS (7)
  1. FLUVOXAMINE [Suspect]
     Indication: BIPOLAR DISORDER
     Route: 065
  2. OLANZAPINE [Suspect]
     Indication: BIPOLAR DISORDER
     Route: 065
  3. LITHIUM [Suspect]
     Indication: BIPOLAR DISORDER
     Route: 065
  4. DIAZEPAM [Suspect]
     Indication: MYOCLONIC EPILEPSY
     Route: 065
  5. VALPROIC ACID [Suspect]
     Indication: MYOCLONIC EPILEPSY
     Route: 050
  6. VALPROIC ACID [Suspect]
     Indication: MYOCLONIC EPILEPSY
     Dosage: 2000 MG/DAY
     Route: 048
  7. DONEPEZIL [Concomitant]
     Indication: BIPOLAR DISORDER
     Route: 065

REACTIONS (2)
  - Toxicity to various agents [Recovered/Resolved with Sequelae]
  - Neurotoxicity [Recovered/Resolved with Sequelae]
